FAERS Safety Report 8885477 (Version 1)
Quarter: 2012Q4

REPORT INFORMATION
  Report Type: 
  Country: BR (occurrence: BR)
  Receive Date: 20121101
  Receipt Date: 20121101
  Transmission Date: 20130627
  Serious: Yes (Other)
  Sender: FDA-Public Use
  Company Number: BR-ELI_LILLY_AND_COMPANY-BR201210008304

PATIENT
  Age: 79 Year
  Sex: Male
  Weight: 63 kg

DRUGS (3)
  1. HUMALOG LISPRO [Suspect]
     Indication: DIABETES MELLITUS
     Dosage: 10 IU, qd
     Route: 058
     Dates: start: 201201
  2. PANTOPRAZOL [Concomitant]
     Indication: CARDIAC DISORDER
     Dosage: 20 mg, unknown
     Route: 065
  3. CLOPIDOGREL [Concomitant]
     Indication: CARDIAC DISORDER
     Dosage: UNK, unknown
     Route: 065

REACTIONS (3)
  - Blood glucose increased [Recovered/Resolved]
  - Feeling abnormal [Recovered/Resolved]
  - Drug dose omission [Recovered/Resolved]
